FAERS Safety Report 13728299 (Version 2)
Quarter: 2017Q3

REPORT INFORMATION
  Report Type: Spontaneous
  Country: JP (occurrence: JP)
  Receive Date: 20170707
  Receipt Date: 20170711
  Transmission Date: 20171127
  Serious: Yes (Other)
  Sender: FDA-Public Use
  Company Number: JP-ROCHE-1958877

PATIENT
  Age: 82 Year
  Sex: Female

DRUGS (7)
  1. LUCENTIS [Suspect]
     Active Substance: RANIBIZUMAB
     Route: 050
     Dates: start: 20151201
  2. EYLEA [Concomitant]
     Active Substance: AFLIBERCEPT
     Dosage: 0.05 ML, UNK
     Route: 065
     Dates: start: 20160526, end: 20160526
  3. EYLEA [Concomitant]
     Active Substance: AFLIBERCEPT
     Dosage: 0.05 ML, UNK
     Route: 065
     Dates: start: 20170124, end: 20170124
  4. LUCENTIS [Suspect]
     Active Substance: RANIBIZUMAB
     Indication: AGE-RELATED MACULAR DEGENERATION
     Route: 050
     Dates: start: 20150912, end: 20151201
  5. EYLEA [Concomitant]
     Active Substance: AFLIBERCEPT
     Dosage: 0.05 ML, UNK
     Route: 065
     Dates: start: 20170411
  6. EYLEA [Concomitant]
     Active Substance: AFLIBERCEPT
     Indication: PRODUCT USED FOR UNKNOWN INDICATION
     Dosage: 0.05 ML, UNK
     Route: 031
     Dates: start: 20160225, end: 20160225
  7. EYLEA [Concomitant]
     Active Substance: AFLIBERCEPT
     Dosage: 0.05 ML, UNK
     Route: 065
     Dates: start: 20160908, end: 20160908

REACTIONS (1)
  - Macular detachment [Unknown]
